FAERS Safety Report 10617193 (Version 2)
Quarter: 2014Q4

REPORT INFORMATION
  Report Type: Spontaneous
  Country: IT (occurrence: IT)
  Receive Date: 20141201
  Receipt Date: 20141210
  Transmission Date: 20150529
  Serious: Yes (Other)
  Sender: FDA-Public Use
  Company Number: IT-TEVA-523906ISR

PATIENT
  Age: 62 Year
  Sex: Male

DRUGS (1)
  1. CISPLATINO TEVA ITALIA [Suspect]
     Active Substance: CISPLATIN
     Indication: MESOTHELIOMA
     Dosage: 1 DOSAGE FORMS DAILY;
     Route: 042
     Dates: start: 20141030, end: 20141030

REACTIONS (4)
  - Lip swelling [Recovered/Resolved]
  - Pruritus generalised [Recovered/Resolved]
  - Dyspnoea [Recovered/Resolved]
  - Flushing [Recovered/Resolved]

NARRATIVE: CASE EVENT DATE: 20141030
